FAERS Safety Report 9723666 (Version 1)
Quarter: 2013Q4

REPORT INFORMATION
  Report Type: Spontaneous
  Country: FR (occurrence: FR)
  Receive Date: 20131202
  Receipt Date: 20131202
  Transmission Date: 20140711
  Serious: Yes (Hospitalization)
  Sender: FDA-Public Use
  Company Number: FR-GLAXOSMITHKLINE-B0947721A

PATIENT
  Age: 47 Year
  Sex: Male

DRUGS (5)
  1. ZELITREX [Suspect]
     Indication: HERPES ZOSTER
     Dosage: 1000MG THREE TIMES PER DAY
     Route: 048
     Dates: start: 20131022, end: 20131105
  2. COOLMETEC [Concomitant]
     Route: 065
  3. LERCAN [Concomitant]
     Route: 065
  4. NON-STEROIDAL ANTI-INFLAMMATORY DRUG [Concomitant]
     Indication: SELF-MEDICATION
     Route: 061
     Dates: start: 20131020
  5. ANTI-HISTAMINE (UNSPECIFIED) [Concomitant]
     Indication: HERPES ZOSTER
     Dates: start: 20131122

REACTIONS (7)
  - Drug reaction with eosinophilia and systemic symptoms [Not Recovered/Not Resolved]
  - Asthenia [Unknown]
  - Rash maculo-papular [Not Recovered/Not Resolved]
  - Pyrexia [Unknown]
  - Lymphadenopathy [Unknown]
  - Liver injury [Not Recovered/Not Resolved]
  - Eosinophilia [Not Recovered/Not Resolved]
